FAERS Safety Report 25160873 (Version 1)
Quarter: 2025Q2

REPORT INFORMATION
  Report Type: Spontaneous
  Country: US (occurrence: None)
  Receive Date: 20250403
  Receipt Date: 20250403
  Transmission Date: 20250717
  Serious: Yes (Life-Threatening)
  Sender: FDA-CTU
  Company Number: None

PATIENT
  Sex: Male
  Weight: 92.8 kg

DRUGS (3)
  1. LORAZEPAM [Suspect]
     Active Substance: LORAZEPAM
     Route: 048
  2. Bupropion 150MG XL Tab [Concomitant]
  3. Propranolol 20MG Tab [Concomitant]

REACTIONS (1)
  - Suicidal ideation [None]
